FAERS Safety Report 7560812-2 (Version None)
Quarter: 2011Q2

REPORT INFORMATION
  Report Type: 
  Country: None (occurrence: None)
  Receive Date: 20110621
  Receipt Date: 20110607
  Transmission Date: 20111010
  Serious: Yes (Hospitalization)
  Sender: FDA-Public Use
  Company Number: US-ROCHE-783627

PATIENT
  Sex: Female

DRUGS (4)
  1. BEVACIZUMAB [Suspect]
     Dosage: OVER 30-90 MINS ON DAY 1 (CYCLE 7-22), PHASE B; LAST DOSE PRIOR TO SAE: 18 AUGUST 2010.
     Route: 042
  2. BEVACIZUMAB [Suspect]
     Indication: OVARIAN EPITHELIAL CANCER
     Dosage: OVER 30-90 MINS ON DAY 1; CYCLES 1-6, BEGINNING WITH CYCLE 2; PHASE A; CYCLE: 3 WEEKS
     Route: 042
     Dates: start: 20091230
  3. CARBOPLATIN [Suspect]
     Indication: OVARIAN EPITHELIAL CANCER
     Dosage: AUC 6 ON DAY 1; PHASE A (CYCLES 1-6); CYCLE: 3 WEEKS
     Route: 033
     Dates: start: 20091230
  4. PACLITAXEL [Suspect]
     Indication: OVARIAN EPITHELIAL CANCER
     Dosage: OVER 1 HOUR ON DAYS 1,8 AND 15; PHASE A (CYCLES: 1-6); CYCLE: 3 WEEKS
     Route: 042
     Dates: start: 20091230

REACTIONS (4)
  - VOMITING [None]
  - BACK PAIN [None]
  - BILIARY TRACT DISORDER [None]
  - KIDNEY INFECTION [None]
